FAERS Safety Report 21466437 (Version 1)
Quarter: 2022Q4

REPORT INFORMATION
  Report Type: Spontaneous
  Country: PT (occurrence: PT)
  Receive Date: 20221017
  Receipt Date: 20221017
  Transmission Date: 20230112
  Serious: Yes (Hospitalization, Other)
  Sender: FDA-Public Use
  Company Number: PT-BoehringerIngelheim-2022-BI-196567

PATIENT
  Age: 61 Year
  Sex: Male

DRUGS (3)
  1. EMPAGLIFLOZIN [Suspect]
     Active Substance: EMPAGLIFLOZIN
     Indication: Product used for unknown indication
  2. Insulin Lispro solution of 25% + Insulin lispro protamin 75% [Concomitant]
     Indication: Product used for unknown indication
     Dosage: 26 U (UNITS) IN THE MORNING AND 18 U BEFORE DINNER
  3. PANCREATIN [Concomitant]
     Active Substance: PANCRELIPASE
     Indication: Product used for unknown indication

REACTIONS (3)
  - Diabetic metabolic decompensation [Recovered/Resolved]
  - Tracheobronchitis [Recovered/Resolved]
  - Euglycaemic diabetic ketoacidosis [Recovered/Resolved]
